FAERS Safety Report 13357849 (Version 1)
Quarter: 2017Q1

REPORT INFORMATION
  Report Type: Spontaneous
  Country: US (occurrence: US)
  Receive Date: 20170320
  Receipt Date: 20170320
  Transmission Date: 20170429
  Serious: Yes (Hospitalization)
  Sender: FDA-Public Use
  Company Number: None

PATIENT
  Age: 72 Year
  Sex: Female

DRUGS (1)
  1. AMPYRA [Suspect]
     Active Substance: DALFAMPRIDINE
     Indication: MULTIPLE SCLEROSIS
     Route: 048
     Dates: start: 20150210

REACTIONS (5)
  - Multiple sclerosis [None]
  - Muscle spasticity [None]
  - Panic attack [None]
  - Gait disturbance [None]
  - Acute kidney injury [None]

NARRATIVE: CASE EVENT DATE: 20160620
